FAERS Safety Report 6014475-8 (Version None)
Quarter: 2008Q4

REPORT INFORMATION
  Report Type: 
  Country: None (occurrence: None)
  Receive Date: 20081219
  Receipt Date: 20080721
  Transmission Date: 20090506
  Serious: No
  Sender: FDA-Public Use
  Company Number: A0736729A

PATIENT
  Age: 70 Year
  Sex: Male

DRUGS (11)
  1. AVODART [Suspect]
     Indication: BENIGN PROSTATIC HYPERPLASIA
     Dosage: .5MG PER DAY
     Route: 048
     Dates: start: 20070701, end: 20080510
  2. ACTOS [Concomitant]
  3. ADVICOR [Concomitant]
  4. MAXZIDE [Concomitant]
  5. ACCUPRIL [Concomitant]
  6. LYRICA [Concomitant]
  7. INSULIN [Concomitant]
  8. GLUCOVANCE [Concomitant]
  9. CARDURA [Concomitant]
  10. EUCERIN CREAM [Concomitant]
  11. LOVAZA [Concomitant]

REACTIONS (1)
  - GYNAECOMASTIA [None]
